FAERS Safety Report 4855723-7 (Version None)
Quarter: 2005Q4

REPORT INFORMATION
  Report Type: 
  Country: None (occurrence: None)
  Receive Date: 20051216
  Receipt Date: 20040820
  Transmission Date: 20060501
  Serious: Yes (Hospitalization, Disabling)
  Sender: FDA-Public Use
  Company Number: US-ROCHE-378346

PATIENT
  Age: 22 Year
  Sex: Female
  Weight: 79.4 kg

DRUGS (4)
  1. ACCUTANE [Suspect]
     Indication: ACNE
     Route: 048
     Dates: start: 19990226, end: 19990629
  2. ORTHO TRI-CYCLEN [Concomitant]
     Route: 048
  3. ZOLOFT [Concomitant]
     Route: 048
  4. TRIPHASIL-28 [Concomitant]
     Route: 048

REACTIONS (60)
  - ABDOMINAL DISTENSION [None]
  - ABDOMINAL PAIN LOWER [None]
  - ABDOMINAL PAIN UPPER [None]
  - ACNE [None]
  - ANAEMIA [None]
  - ANOREXIA [None]
  - ANXIETY [None]
  - ANXIETY DISORDER [None]
  - ARTHROPATHY [None]
  - ASTIGMATISM [None]
  - ATELECTASIS [None]
  - BLOOD CULTURE POSITIVE [None]
  - CALCULUS URINARY [None]
  - CHAPPED LIPS [None]
  - COLITIS [None]
  - CONSTIPATION [None]
  - CONTUSION [None]
  - CROHN'S DISEASE [None]
  - CUSHINGOID [None]
  - CYSTITIS [None]
  - DEPRESSION [None]
  - DIARRHOEA [None]
  - DIZZINESS [None]
  - DRUG INEFFECTIVE [None]
  - DRY EYE [None]
  - DYSPEPSIA [None]
  - EPISTAXIS [None]
  - FALL [None]
  - FATIGUE [None]
  - GASTROENTERITIS BACTERIAL [None]
  - GLUCOSE TOLERANCE IMPAIRED [None]
  - GRANULOMA [None]
  - HEADACHE [None]
  - HEPATIC STEATOSIS [None]
  - HYPERTENSION [None]
  - INFLAMMATORY BOWEL DISEASE [None]
  - INSOMNIA [None]
  - INTESTINAL OBSTRUCTION [None]
  - JOINT STIFFNESS [None]
  - LIGAMENT INJURY [None]
  - LIP DRY [None]
  - MOOD SWINGS [None]
  - NASAL DRYNESS [None]
  - NAUSEA [None]
  - NEPHROLITHIASIS [None]
  - ORAL INTAKE REDUCED [None]
  - OVARIAN CYST [None]
  - PNEUMONIA [None]
  - PREGNANCY [None]
  - RECTAL HAEMORRHAGE [None]
  - SEPSIS [None]
  - SKIN STRIAE [None]
  - STRESS [None]
  - SYNOVITIS [None]
  - URTICARIA [None]
  - VISUAL DISTURBANCE [None]
  - VOMITING [None]
  - WEIGHT INCREASED [None]
  - WHITE BLOOD CELL COUNT INCREASED [None]
  - YERSINIA INFECTION [None]
